FAERS Safety Report 4404330-9 (Version None)
Quarter: 2004Q3

REPORT INFORMATION
  Report Type: 
  Country: None (occurrence: None)
  Receive Date: 20040713
  Receipt Date: 20040701
  Transmission Date: 20050211
  Serious: Yes (Hospitalization)
  Sender: FDA-Public Use
  Company Number: 200410141BBE

PATIENT
  Age: 57 Year
  Sex: Female
  Weight: 69.4003 kg

DRUGS (8)
  1. GAMUNEX [Suspect]
     Indication: ABSCESS
     Dosage: 30 G, TOTAL DAILY, INTRAVENOUS
     Route: 042
     Dates: start: 20040604
  2. GAMUNEX [Suspect]
     Indication: HYPOGAMMAGLOBULINAEMIA
     Dosage: 30 G, TOTAL DAILY, INTRAVENOUS
     Route: 042
     Dates: start: 20040604
  3. GAMUNEX [Suspect]
     Indication: MULTIPLE MYELOMA
     Dosage: 30 G, TOTAL DAILY, INTRAVENOUS
     Route: 042
     Dates: start: 20040604
  4. GAMUNEX [Suspect]
  5. BENADRYL [Concomitant]
  6. TYLENOL [Concomitant]
  7. TAGAMET [Concomitant]
  8. COUMADIN [Concomitant]

REACTIONS (3)
  - CHEST DISCOMFORT [None]
  - CHEST PAIN [None]
  - DYSPNOEA [None]
